FAERS Safety Report 14216740 (Version 2)
Quarter: 2018Q2

REPORT INFORMATION
  Report Type: Spontaneous
  Country: HR (occurrence: HR)
  Receive Date: 20171122
  Receipt Date: 20180412
  Transmission Date: 20180711
  Serious: Yes (Death, Hospitalization, Other)
  Sender: FDA-Public Use
  Company Number: HR-TEVA-2017-HR-826341

PATIENT
  Age: 53 Year
  Sex: Male

DRUGS (11)
  1. ANALOG INSULIN [Concomitant]
     Route: 065
     Dates: start: 201503
  2. PREDNISOLONE. [Concomitant]
     Active Substance: PREDNISOLONE
     Indication: MYCOSIS FUNGOIDES
     Route: 065
     Dates: start: 201503
  3. FLUCONAZOLE. [Suspect]
     Active Substance: FLUCONAZOLE
     Indication: CANDIDA INFECTION
     Route: 065
  4. CYCLOPHOSPHAMIDE. [Concomitant]
     Active Substance: CYCLOPHOSPHAMIDE
     Indication: MYCOSIS FUNGOIDES
     Dosage: TWO CYCLES
     Route: 065
  5. AZATHIOPRINE. [Concomitant]
     Active Substance: AZATHIOPRINE
     Indication: MYCOSIS FUNGOIDES
     Route: 065
     Dates: start: 201503
  6. URSODEOXICOLIC ACID [Concomitant]
     Indication: MYCOSIS FUNGOIDES
     Route: 065
     Dates: start: 201503
  7. ALLOPURINOL. [Concomitant]
     Active Substance: ALLOPURINOL
     Indication: MYCOSIS FUNGOIDES
     Route: 065
     Dates: start: 201503
  8. ACITRETIN. [Suspect]
     Active Substance: ACITRETIN
     Indication: PRODUCT USED FOR UNKNOWN INDICATION
     Route: 065
  9. METHYLPREDNISOLONE. [Concomitant]
     Active Substance: METHYLPREDNISOLONE
     Indication: MYCOSIS FUNGOIDES
     Dosage: TWO CYCLES
     Route: 065
  10. VINCRISTINE [Concomitant]
     Active Substance: VINCRISTINE
     Indication: MYCOSIS FUNGOIDES
     Dosage: TWO CYCLES
     Route: 065
  11. DOXORUBICIN [Concomitant]
     Active Substance: DOXORUBICIN
     Indication: MYCOSIS FUNGOIDES
     Dosage: TWO CYCLES
     Route: 065

REACTIONS (8)
  - Sepsis [Fatal]
  - Liver injury [Unknown]
  - Febrile neutropenia [Fatal]
  - Candida infection [Unknown]
  - Autoimmune hepatitis [Unknown]
  - Mycosis fungoides [Unknown]
  - Diabetes mellitus [Unknown]
  - Lymphoma [Unknown]

NARRATIVE: CASE EVENT DATE: 201409
